FAERS Safety Report 6191315-8 (Version None)
Quarter: 2009Q2

REPORT INFORMATION
  Report Type: 
  Country: None (occurrence: None)
  Receive Date: 20090515
  Receipt Date: 20090506
  Transmission Date: 20091009
  Serious: Yes (Other)
  Sender: FDA-Public Use
  Company Number: US-ROCHE-629538

PATIENT
  Age: 48 Year
  Sex: Male

DRUGS (2)
  1. PEGASYS [Suspect]
     Dosage: FORM: PRE-FILLED SYRINGE.
     Route: 065
     Dates: start: 20081001
  2. RIBAVIRIN [Suspect]
     Route: 065
     Dates: start: 20081001

REACTIONS (1)
  - BLOOD POTASSIUM INCREASED [None]
